FAERS Safety Report 7229102-1 (Version None)
Quarter: 2011Q1

REPORT INFORMATION
  Report Type: 
  Country: None (occurrence: None)
  Receive Date: 20110117
  Receipt Date: 20110111
  Transmission Date: 20110831
  Serious: Yes (Hospitalization, Other)
  Sender: FDA-Public Use
  Company Number: US-JNJFOC-20100801682

PATIENT
  Sex: Male

DRUGS (4)
  1. LEVAQUIN [Suspect]
     Indication: SINUSITIS
     Route: 048
  2. DIOVAN [Concomitant]
     Indication: HYPERTENSION
     Route: 065
  3. LEVAQUIN [Suspect]
     Indication: INFLUENZA
     Route: 048
  4. LIPITOR [Concomitant]
     Indication: BLOOD CHOLESTEROL INCREASED
     Route: 065

REACTIONS (3)
  - ARTHRITIS [None]
  - ROTATOR CUFF SYNDROME [None]
  - CONSTIPATION [None]
